FAERS Safety Report 11103367 (Version 1)
Quarter: 2015Q2

REPORT INFORMATION
  Report Type: Spontaneous
  Country: US (occurrence: None)
  Receive Date: 20150508
  Receipt Date: 20150508
  Transmission Date: 20150821
  Serious: Yes (Hospitalization)
  Sender: FDA-Public Use
  Company Number: None

PATIENT
  Age: 40 Year
  Sex: Female

DRUGS (1)
  1. DISULFIRAM. [Suspect]
     Active Substance: DISULFIRAM
     Indication: GLIOBLASTOMA
     Dosage: 500 MG, PO, DAYS 1-28
     Route: 048
     Dates: start: 20150202, end: 20150423

REACTIONS (3)
  - Hypoaesthesia [None]
  - Intervertebral disc degeneration [None]
  - Peroneal nerve palsy [None]

NARRATIVE: CASE EVENT DATE: 20150423
